FAERS Safety Report 16680755 (Version 2)
Quarter: 2021Q4

REPORT INFORMATION
  Report Type: Spontaneous
  Country: US (occurrence: US)
  Receive Date: 20190808
  Receipt Date: 20211130
  Transmission Date: 20220303
  Serious: Yes (Hospitalization)
  Sender: FDA-Public Use
  Company Number: US-TEVA-2019-US-1086997

PATIENT
  Sex: Male

DRUGS (1)
  1. DEUTETRABENAZINE [Suspect]
     Active Substance: DEUTETRABENAZINE
     Dosage: FOR APPROXIMATELY 3 YEARS
     Route: 065

REACTIONS (6)
  - Gait disturbance [Unknown]
  - Tremor [Unknown]
  - Muscle disorder [Unknown]
  - Parkinsonism [Unknown]
  - Cerebrovascular accident [Unknown]
  - Motor dysfunction [Unknown]
